FAERS Safety Report 4776633-X (Version None)
Quarter: 2005Q3

REPORT INFORMATION
  Report Type: 
  Country: None (occurrence: None)
  Receive Date: 20050923
  Receipt Date: 20050916
  Transmission Date: 20060218
  Serious: Yes (Other)
  Sender: FDA-Public Use
  Company Number: 2005UW13780

PATIENT
  Age: 59 Year
  Sex: Female
  Weight: 60.8 kg

DRUGS (2)
  1. ARIMIDEX [Suspect]
     Indication: BREAST CANCER
     Route: 048
  2. BLOOD PRESSURE PILL [Concomitant]
     Indication: HYPERTENSION

REACTIONS (1)
  - NON-HODGKIN'S LYMPHOMA [None]
